FAERS Safety Report 25334718 (Version 3)
Quarter: 2025Q3

REPORT INFORMATION
  Report Type: Other
  Country: EU (occurrence: EU)
  Receive Date: 20250520
  Receipt Date: 20250708
  Transmission Date: 20251021
  Serious: Yes (Life-Threatening, Hospitalization)
  Sender: ZYDUS PHARM
  Company Number: None

PATIENT

DRUGS (4)
  1. ATENOLOL [Interacting]
     Active Substance: ATENOLOL
     Indication: Product used for unknown indication
     Route: 048
     Dates: start: 20250117, end: 20250117
  2. HYDROCHLOROTHIAZIDE\OLMESARTAN [Interacting]
     Active Substance: HYDROCHLOROTHIAZIDE\OLMESARTAN
     Indication: Suicide attempt
     Route: 048
     Dates: start: 20250117, end: 20250117
  3. QUETIAPINE [Interacting]
     Active Substance: QUETIAPINE
     Indication: Product used for unknown indication
     Route: 048
     Dates: start: 20250117, end: 20250117
  4. CLOMIPRAMINE [Interacting]
     Active Substance: CLOMIPRAMINE
     Indication: Suicidal ideation
     Route: 048
     Dates: start: 20250117, end: 20250117

REACTIONS (4)
  - Cardio-respiratory arrest [Recovered/Resolved]
  - Shock [Recovered/Resolved]
  - Acute kidney injury [Recovered/Resolved]
  - Pancreatitis acute [Recovered/Resolved]

NARRATIVE: CASE EVENT DATE: 20250117
